FAERS Safety Report 4725164-1 (Version None)
Quarter: 2005Q3

REPORT INFORMATION
  Report Type: 
  Country: None (occurrence: None)
  Receive Date: 20050721
  Receipt Date: 20050615
  Transmission Date: 20060218
  Serious: No
  Sender: FDA-Public Use
  Company Number: 2005SP001439

PATIENT
  Age: 45 Year
  Sex: Male

DRUGS (2)
  1. LUNESTA [Suspect]
     Dosage: 3 MG;HS;
  2. VALIUM [Concomitant]

REACTIONS (1)
  - ERECTILE DYSFUNCTION [None]
